FAERS Safety Report 8337931-6 (Version None)
Quarter: 2012Q2

REPORT INFORMATION
  Report Type: 
  Country: None (occurrence: None)
  Receive Date: 20120504
  Receipt Date: 20120423
  Transmission Date: 20120825
  Serious: Yes (Other)
  Sender: FDA-Public Use
  Company Number: US-JNJFOC-20120411982

PATIENT
  Sex: Male
  Weight: 72.58 kg

DRUGS (2)
  1. FENTANYL-100 [Suspect]
     Indication: DRUG ABUSE
     Route: 048
     Dates: start: 20110901
  2. NUCYNTA [Concomitant]
     Indication: INTERVERTEBRAL DISC DISORDER
     Route: 048
     Dates: start: 20120201

REACTIONS (4)
  - INTENTIONAL DRUG MISUSE [None]
  - WRONG TECHNIQUE IN DRUG USAGE PROCESS [None]
  - PRODUCT QUALITY ISSUE [None]
  - DRUG ABUSE [None]
